FAERS Safety Report 17003359 (Version 2)
Quarter: 2024Q1

REPORT INFORMATION
  Report Type: Spontaneous
  Country: FR (occurrence: FR)
  Receive Date: 20191107
  Receipt Date: 20240322
  Transmission Date: 20240409
  Serious: Yes (Hospitalization)
  Sender: FDA-Public Use
  Company Number: None

PATIENT
  Age: 17 Year
  Sex: Female
  Weight: 30 kg

DRUGS (13)
  1. LANSOPRAZOLE [Suspect]
     Active Substance: LANSOPRAZOLE
     Indication: Product used for unknown indication
     Dosage: UNK
     Route: 048
     Dates: start: 20190416, end: 20190518
  2. GANCICLOVIR [Suspect]
     Active Substance: GANCICLOVIR
     Indication: Cytomegalovirus viraemia
     Dosage: DOSAGE TEXT: 70 MG
     Route: 042
     Dates: start: 20190503, end: 20190515
  3. GANCICLOVIR [Suspect]
     Active Substance: GANCICLOVIR
     Indication: Cytomegalovirus viraemia
     Dosage: 90 MILLIGRAM, QD
     Route: 042
     Dates: start: 20190503, end: 20190515
  4. VORICONAZOLE [Concomitant]
     Active Substance: VORICONAZOLE
     Dosage: DOSAGE TEXT: 400 MG
     Route: 042
     Dates: start: 20190401, end: 20190523
  5. FERROUS SULFATE [Concomitant]
     Active Substance: FERROUS SULFATE
     Dosage: UNK
     Route: 048
     Dates: start: 20190427, end: 20190502
  6. KARDEGIC [Concomitant]
     Active Substance: ASPIRIN DL-LYSINE
     Indication: Product used for unknown indication
     Dosage: UNK
     Route: 048
     Dates: start: 20190401, end: 20190725
  7. LORAZEPAM [Suspect]
     Active Substance: LORAZEPAM
     Indication: Product used for unknown indication
     Dosage: UNK
     Route: 048
     Dates: start: 20190416, end: 20190518
  8. MYCOPHENOLATE MOFETIL [Interacting]
     Active Substance: MYCOPHENOLATE MOFETIL
     Indication: Product used for unknown indication
     Dosage: 500 MILLIGRAM, Q12H
     Route: 048
     Dates: start: 20190308
  9. AMIODARONE [Concomitant]
     Active Substance: AMIODARONE
     Indication: Product used for unknown indication
     Dosage: DOSAGE TEXT: 200 MG
     Route: 048
     Dates: start: 20190331
  10. PREDNISONE [Concomitant]
     Active Substance: PREDNISONE
     Dosage: UNK
     Route: 048
     Dates: start: 20190311, end: 20190730
  11. TACROLIMUS [Concomitant]
     Active Substance: TACROLIMUS
     Dosage: DOSAGE TEXT: 2 MCG
     Route: 048
     Dates: start: 20190308
  12. CLOPIDOGREL HYDROCHLORIDE [Concomitant]
     Active Substance: CLOPIDOGREL HYDROCHLORIDE
     Route: 048
     Dates: start: 20190401, end: 20190612
  13. VALGANCICLOVIR [Suspect]
     Active Substance: VALGANCICLOVIR
     Indication: Antiviral prophylaxis
     Dosage: DOSAGE TEXT: 450 MG
     Route: 048
     Dates: start: 20190308, end: 20190902

REACTIONS (2)
  - Agranulocytosis [Recovered/Resolved]
  - Drug interaction [Unknown]

NARRATIVE: CASE EVENT DATE: 20190506
